FAERS Safety Report 18029613 (Version 2)
Quarter: 2021Q4

REPORT INFORMATION
  Report Type: Spontaneous
  Country: US (occurrence: US)
  Receive Date: 20200716
  Receipt Date: 20211221
  Transmission Date: 20220304
  Serious: Yes (Other)
  Sender: FDA-Public Use
  Company Number: US-GLAXOSMITHKLINE-US2020132659

PATIENT
  Sex: Female

DRUGS (8)
  1. ZANTAC [Suspect]
     Active Substance: RANITIDINE HYDROCHLORIDE
     Route: 065
  2. RANITIDINE [Suspect]
     Active Substance: RANITIDINE
     Route: 065
  3. ZANTAC [Suspect]
     Active Substance: RANITIDINE HYDROCHLORIDE
     Dosage: 75 MG, BETWEEN PRESCRIPTIONS
     Route: 065
     Dates: start: 2016, end: 2020
  4. ZANTAC [Suspect]
     Active Substance: RANITIDINE HYDROCHLORIDE
     Dosage: 150 MG, BETWEEN PRESCRIPTIONS
     Route: 065
     Dates: start: 2016, end: 2020
  5. RANITIDINE [Suspect]
     Active Substance: RANITIDINE
     Dosage: 75 MG, BETWEEN PRESCRIPTIONS
     Route: 065
     Dates: start: 2016, end: 2020
  6. RANITIDINE [Suspect]
     Active Substance: RANITIDINE
     Dosage: 150 MG, BETWEEN PRESCRIPTIONS
     Route: 065
     Dates: start: 2016, end: 2020
  7. RANITIDINE [Suspect]
     Active Substance: RANITIDINE
     Dosage: 150 MG, QD
     Route: 065
     Dates: start: 2016, end: 2020
  8. RANITIDINE [Suspect]
     Active Substance: RANITIDINE
     Dosage: 150 MG, QD
     Route: 065
     Dates: start: 2016, end: 2020

REACTIONS (1)
  - Pancreatic carcinoma [Unknown]
